FAERS Safety Report 19407777 (Version 3)
Quarter: 2021Q3

REPORT INFORMATION
  Report Type: Report from Study
  Country: US (occurrence: US)
  Receive Date: 20210612
  Receipt Date: 20210906
  Transmission Date: 20211014
  Serious: No
  Sender: FDA-Public Use
  Company Number: NVSC2021US127241

PATIENT
  Sex: Female

DRUGS (1)
  1. KESIMPTA [Suspect]
     Active Substance: OFATUMUMAB
     Indication: RELAPSING MULTIPLE SCLEROSIS
     Route: 058
     Dates: start: 20210412

REACTIONS (6)
  - Feeling hot [Not Recovered/Not Resolved]
  - Myalgia [Unknown]
  - Hot flush [Not Recovered/Not Resolved]
  - Ill-defined disorder [Unknown]
  - Ligament disorder [Unknown]
  - Pain in extremity [Unknown]
